FAERS Safety Report 14009368 (Version 1)
Quarter: 2017Q3

REPORT INFORMATION
  Report Type: Spontaneous
  Country: FR (occurrence: FR)
  Receive Date: 20170925
  Receipt Date: 20170925
  Transmission Date: 20171128
  Serious: Yes (Hospitalization)
  Sender: FDA-Public Use
  Company Number: FR-LPDUSPRD-20171303

PATIENT
  Age: 72 Year
  Sex: Female

DRUGS (11)
  1. PARACETAMOL [Concomitant]
     Active Substance: ACETAMINOPHEN
     Dosage: UNKNOWN
     Route: 042
     Dates: start: 20170801
  2. PHYTOMENADIONE [Suspect]
     Active Substance: PHYTONADIONE
     Dosage: UNKNOWN
     Route: 042
  3. PANTOPRAZOLE SODIUM. [Concomitant]
     Active Substance: PANTOPRAZOLE SODIUM
     Dosage: UNKNOWN
     Route: 042
     Dates: start: 20170801
  4. SMECTA [Concomitant]
     Active Substance: MONTMORILLONITE
     Dosage: UNKNOWN
     Route: 048
     Dates: start: 20170813
  5. FERINJECT [Suspect]
     Active Substance: FERRIC CARBOXYMALTOSE
     Dosage: 1000 MG /UNSPECIFIED DILUTION
     Route: 042
  6. PLITICAN [Concomitant]
     Active Substance: ALIZAPRIDE HYDROCHLORIDE
     Dosage: UNKNOWN
     Route: 042
     Dates: start: 20170805
  7. FUNGIZONE [Concomitant]
     Active Substance: AMPHOTERICIN B
     Dosage: UNKNOWN
     Route: 048
     Dates: start: 20170814
  8. LOVENOX [Concomitant]
     Active Substance: ENOXAPARIN SODIUM
     Dosage: UNKNOWN
     Route: 058
  9. FUROSEMIDE RENAUDIN [Concomitant]
     Active Substance: FUROSEMIDE
     Dosage: UNKNOWN
     Route: 042
     Dates: start: 20170802
  10. MORPHINE LAVOISIRE [Concomitant]
     Dosage: UNKNOWN
     Route: 042
     Dates: start: 20170731
  11. PHOCYTAN [Concomitant]
     Active Substance: .ALPHA.-GLUCOSE-1-PHOSPHATE
     Dosage: UNKNOWN
     Route: 042
     Dates: start: 20170804

REACTIONS (3)
  - Urticaria [Unknown]
  - Enterobacter test positive [Unknown]
  - Purpura [Unknown]

NARRATIVE: CASE EVENT DATE: 20170816
